FAERS Safety Report 20825789 (Version 1)
Quarter: 2022Q2

REPORT INFORMATION
  Report Type: Spontaneous
  Country: FR (occurrence: FR)
  Receive Date: 20220513
  Receipt Date: 20220513
  Transmission Date: 20220721
  Serious: Yes (Other)
  Sender: FDA-Public Use
  Company Number: FR-ROCHE-3084683

PATIENT
  Age: 40 Year
  Sex: Female

DRUGS (18)
  1. LENALIDOMIDE [Suspect]
     Active Substance: LENALIDOMIDE
     Indication: Burkitt^s lymphoma
     Route: 048
  2. PREDNISOLONE [Suspect]
     Active Substance: PREDNISOLONE
     Indication: Burkitt^s lymphoma
     Route: 065
  3. CARBOPLATIN [Concomitant]
     Active Substance: CARBOPLATIN
     Route: 065
  4. DEXAMETHASONE [Concomitant]
     Active Substance: DEXAMETHASONE
     Indication: Burkitt^s lymphoma
     Route: 065
  5. CYTARABINE [Concomitant]
     Active Substance: CYTARABINE
     Indication: Burkitt^s lymphoma
     Route: 065
  6. ETOPOSIDE [Concomitant]
     Active Substance: ETOPOSIDE
     Indication: Burkitt^s lymphoma
     Route: 065
  7. METHOTREXATE [Concomitant]
     Active Substance: METHOTREXATE
     Indication: Burkitt^s lymphoma
     Route: 065
  8. RITUXIMAB [Concomitant]
     Active Substance: RITUXIMAB
     Indication: Burkitt^s lymphoma
     Route: 042
  9. RITUXIMAB [Concomitant]
     Active Substance: RITUXIMAB
     Route: 042
  10. CYCLOPHOSPHAMIDE [Concomitant]
     Active Substance: CYCLOPHOSPHAMIDE
     Indication: Burkitt^s lymphoma
     Route: 065
  11. FLUDARABINE [Concomitant]
     Active Substance: FLUDARABINE PHOSPHATE
     Indication: Burkitt^s lymphoma
     Route: 065
  12. TACROLIMUS [Concomitant]
     Active Substance: TACROLIMUS
     Dosage: TROUGH LEVEL 5.4 NG/ML
     Route: 065
  13. IFOSFAMIDE [Concomitant]
     Active Substance: IFOSFAMIDE
     Indication: Burkitt^s lymphoma
     Route: 065
  14. METHYLPREDNISOLONE [Concomitant]
     Active Substance: METHYLPREDNISOLONE
     Indication: Transplant rejection
     Route: 065
  15. DOXORUBICIN [Concomitant]
     Active Substance: DOXORUBICIN
     Indication: Burkitt^s lymphoma
     Route: 065
  16. VINCRISTINE [Concomitant]
     Active Substance: VINCRISTINE
     Indication: Burkitt^s lymphoma
     Route: 065
  17. KYMRIAH [Concomitant]
     Active Substance: TISAGENLECLEUCEL
     Indication: Burkitt^s lymphoma
     Route: 065
  18. AZATHIOPRINE [Concomitant]
     Active Substance: AZATHIOPRINE
     Indication: Prophylaxis against transplant rejection
     Route: 065

REACTIONS (2)
  - Intentional product use issue [Unknown]
  - Bronchopulmonary aspergillosis [Unknown]
